FAERS Safety Report 16818230 (Version 1)
Quarter: 2019Q3

REPORT INFORMATION
  Report Type: Report from Study
  Country: US (occurrence: US)
  Receive Date: 20190917
  Receipt Date: 20190917
  Transmission Date: 20191005
  Serious: Yes (Hospitalization, Other)
  Sender: FDA-Public Use
  Company Number: US-GILEAD-2019-0428596

PATIENT
  Age: 44 Year
  Sex: Female

DRUGS (1)
  1. AXICABTAGENE CILOLEUCEL [Suspect]
     Active Substance: AXICABTAGENE CILOLEUCEL
     Indication: DIFFUSE LARGE B-CELL LYMPHOMA
     Dosage: UNK
     Route: 042
     Dates: start: 201804, end: 201804

REACTIONS (8)
  - Neurological symptom [Recovered/Resolved]
  - Nasopharyngitis [Recovered/Resolved]
  - B-lymphocyte count decreased [Not Recovered/Not Resolved]
  - Pyrexia [Recovered/Resolved]
  - Therapeutic response unexpected [Recovering/Resolving]
  - Therapeutic response unexpected [Recovered/Resolved]
  - Immunodeficiency [Not Recovered/Not Resolved]
  - Cognitive disorder [Recovered/Resolved]

NARRATIVE: CASE EVENT DATE: 201804
